FAERS Safety Report 8833465 (Version 2)
Quarter: 2013Q2

REPORT INFORMATION
  Report Type: Spontaneous
  Country: IN (occurrence: IN)
  Receive Date: 20121010
  Receipt Date: 20130415
  Transmission Date: 20140414
  Serious: Yes (Hospitalization, Other)
  Sender: FDA-Public Use
  Company Number: PHHY2012IN085946

PATIENT
  Age: 58 Year
  Sex: Female

DRUGS (7)
  1. TELMISARTAN+HYDROCHLOROTHIAZIDE [Suspect]
     Indication: HYPERTENSION
  2. ACECLOFENAC/PARACETAMOL [Interacting]
     Indication: OSTEOARTHRITIS
     Dosage: 100 MG, UNK
  3. ACECLOFENAC/PARACETAMOL [Interacting]
     Indication: OSTEOARTHRITIS
     Dosage: 500 MG, UNK
  4. LITHIUM [Interacting]
     Indication: BIPOLAR DISORDER
     Dosage: 600 MG PER DAY
  5. QUETIAPINE [Concomitant]
     Indication: BIPOLAR DISORDER
  6. LEVOTHYROXINE SODIUM [Concomitant]
     Indication: HYPOTHYROIDISM
  7. AMLODIPINE [Concomitant]

REACTIONS (8)
  - Toxicity to various agents [Recovering/Resolving]
  - Somnolence [Recovering/Resolving]
  - Dysarthria [Recovering/Resolving]
  - Ataxia [Recovering/Resolving]
  - Gait disturbance [Recovering/Resolving]
  - Tremor [Recovering/Resolving]
  - Drug interaction [Unknown]
  - Insomnia [Recovering/Resolving]
